FAERS Safety Report 4991072-4 (Version None)
Quarter: 2006Q2

REPORT INFORMATION
  Report Type: 
  Country: None (occurrence: None)
  Receive Date: 20060503
  Receipt Date: 20051104
  Transmission Date: 20061013
  Serious: Yes (Hospitalization)
  Sender: FDA-Public Use
  Company Number: US-MERCK-0511USA01054

PATIENT
  Age: 70 Year
  Sex: Female
  Weight: 68 kg

DRUGS (2)
  1. VIOXX [Suspect]
     Indication: RHEUMATOID ARTHRITIS
     Route: 048
     Dates: start: 19991028, end: 20010321
  2. PREMARIN [Concomitant]
     Route: 065

REACTIONS (14)
  - ABDOMINAL PAIN UPPER [None]
  - ACUTE MYOCARDIAL INFARCTION [None]
  - ARTERIAL HAEMORRHAGE [None]
  - ARTHRALGIA [None]
  - BACK DISORDER [None]
  - CARDIOGENIC SHOCK [None]
  - CORONARY ARTERY DISEASE [None]
  - CORONARY ARTERY OCCLUSION [None]
  - GAMMA-GLUTAMYLTRANSFERASE INCREASED [None]
  - HYPERTENSION [None]
  - MIXED HYPERLIPIDAEMIA [None]
  - RECTAL HAEMORRHAGE [None]
  - ROTATOR CUFF SYNDROME [None]
  - UPPER RESPIRATORY TRACT INFECTION [None]
